FAERS Safety Report 9628844 (Version 1)
Quarter: 2013Q4

REPORT INFORMATION
  Report Type: Spontaneous
  Country: PR (occurrence: PR)
  Receive Date: 20131017
  Receipt Date: 20131017
  Transmission Date: 20140711
  Serious: No
  Sender: FDA-Public Use
  Company Number: PR-BAYER-2013-125473

PATIENT
  Age: 23 Year
  Sex: Female

DRUGS (1)
  1. GADAVIST [Suspect]
     Indication: BENIGN BONE NEOPLASM
     Dosage: 5 ML, ONCE
     Dates: start: 20131010, end: 20131010

REACTIONS (1)
  - Urticaria [Recovered/Resolved]
